FAERS Safety Report 10210806 (Version 1)
Quarter: 2014Q2

REPORT INFORMATION
  Report Type: Spontaneous
  Country: US (occurrence: None)
  Receive Date: 20140530
  Receipt Date: 20140530
  Transmission Date: 20141212
  Serious: No
  Sender: FDA-Public Use
  Company Number: None

PATIENT
  Age: 71 Year
  Sex: Female
  Weight: 54.43 kg

DRUGS (1)
  1. ARIMIDEX ^ASTRAZENECA^ [Suspect]
     Indication: NEOPLASM MALIGNANT
     Dates: start: 201312, end: 201405

REACTIONS (12)
  - Arthralgia [None]
  - Pain in extremity [None]
  - Pain in extremity [None]
  - Hyperhidrosis [None]
  - Headache [None]
  - Weight fluctuation [None]
  - Depression [None]
  - Peripheral swelling [None]
  - Myalgia [None]
  - Dizziness [None]
  - Fatigue [None]
  - Peripheral swelling [None]
